FAERS Safety Report 22944357 (Version 3)
Quarter: 2023Q4

REPORT INFORMATION
  Report Type: Spontaneous
  Country: US (occurrence: US)
  Receive Date: 20230914
  Receipt Date: 20231122
  Transmission Date: 20240110
  Serious: Yes (Other)
  Sender: FDA-Public Use
  Company Number: US-SUN PHARMACEUTICAL INDUSTRIES LTD-2023R1-408023

PATIENT
  Sex: Male

DRUGS (1)
  1. ODOMZO [Suspect]
     Active Substance: SONIDEGIB
     Indication: Product used for unknown indication
     Dosage: UNK, QD
     Route: 048

REACTIONS (6)
  - Loss of control of legs [Unknown]
  - Muscular weakness [Unknown]
  - Therapy interrupted [Unknown]
  - Muscle spasms [Recovering/Resolving]
  - Muscle strain [Recovering/Resolving]
  - Product dose omission issue [Unknown]
